FAERS Safety Report 23672652 (Version 1)
Quarter: 2024Q1

REPORT INFORMATION
  Report Type: Spontaneous
  Country: US (occurrence: None)
  Receive Date: 20240325
  Receipt Date: 20240325
  Transmission Date: 20240409
  Serious: Yes (Other)
  Sender: FDA-Public Use
  Company Number: None

PATIENT
  Age: 64 Year
  Sex: Female
  Weight: 81 kg

DRUGS (3)
  1. PAXLOVID [Suspect]
     Active Substance: NIRMATRELVIR\RITONAVIR
     Indication: COVID-19
     Dosage: OTHER QUANTITY : 3 TABLET(S);?FREQUENCY : TWICE A DAY;?
     Route: 048
     Dates: start: 20240315, end: 20240320
  2. TRIAMCINOLONE ACETONIDE [Concomitant]
     Active Substance: TRIAMCINOLONE ACETONIDE
  3. Perfect Biotics 30 Billion CFUs (Probiotic America) [Concomitant]

REACTIONS (6)
  - Abdominal discomfort [None]
  - Nasopharyngitis [None]
  - Pyrexia [None]
  - Headache [None]
  - Pain [None]
  - COVID-19 [None]

NARRATIVE: CASE EVENT DATE: 20240316
